FAERS Safety Report 9324884 (Version 1)
Quarter: 2013Q2

REPORT INFORMATION
  Report Type: Spontaneous
  Country: AU (occurrence: AU)
  Receive Date: 20130603
  Receipt Date: 20130603
  Transmission Date: 20140414
  Serious: Yes (Other)
  Sender: FDA-Public Use
  Company Number: PHHY2013AU054545

PATIENT
  Sex: Female

DRUGS (4)
  1. PROMETHAZINE [Suspect]
     Indication: INSOMNIA
  2. ANTIDEPRESSANTS [Concomitant]
  3. BENZODIAZEPINES [Concomitant]
  4. ANTIPSYCHOTICS [Concomitant]

REACTIONS (14)
  - Vision blurred [Unknown]
  - Memory impairment [Unknown]
  - Disturbance in attention [Unknown]
  - Restlessness [Recovered/Resolved]
  - Dysphoria [Unknown]
  - Anxiety [Recovered/Resolved]
  - Tremor [Recovered/Resolved]
  - Concomitant disease aggravated [Unknown]
  - Drug withdrawal syndrome [Recovered/Resolved]
  - Drug abuse [Unknown]
  - Drug tolerance [Unknown]
  - Intentional drug misuse [Unknown]
  - Drug dependence [Recovered/Resolved]
  - Overdose [Unknown]
